FAERS Safety Report 8352269-9 (Version None)
Quarter: 2012Q2

REPORT INFORMATION
  Report Type: 
  Country: None (occurrence: None)
  Receive Date: 20120511
  Receipt Date: 20120502
  Transmission Date: 20120825
  Serious: Yes (Death)
  Sender: FDA-Public Use
  Company Number: US-CELGENEUS-163-20785-12040146

PATIENT
  Sex: Male

DRUGS (9)
  1. DEXAMETHASONE [Concomitant]
     Dosage: 4 MILLIGRAM
     Route: 048
     Dates: end: 20120402
  2. CELECOXIB [Concomitant]
     Route: 065
     Dates: start: 20120330, end: 20120331
  3. THALOMID [Suspect]
     Indication: MALIGNANT HISTIOCYTOSIS
     Dosage: 150 MILLIGRAM
     Route: 048
     Dates: start: 20120329, end: 20120330
  4. ETOPOSIDE [Concomitant]
     Route: 065
     Dates: start: 20120330, end: 20120331
  5. FENOFIBRATE [Concomitant]
     Route: 065
     Dates: start: 20120330, end: 20120331
  6. OMEPRAZOLE [Concomitant]
     Indication: GASTRITIS
     Dosage: 20 MILLIGRAM
     Route: 048
     Dates: end: 20120402
  7. KEPPRA [Concomitant]
     Dosage: 1000 MILLIGRAM
     Route: 048
     Dates: end: 20120402
  8. PHENYTOIN [Concomitant]
     Dosage: 200 MILLIGRAM
     Route: 048
     Dates: end: 20120402
  9. CITALOPRAM HYDROBROMIDE [Concomitant]
     Indication: DEPRESSION
     Dosage: 10 MILLIGRAM
     Route: 048
     Dates: end: 20120402

REACTIONS (1)
  - MALIGNANT HISTIOCYTOSIS [None]
